FAERS Safety Report 13665759 (Version 1)
Quarter: 2017Q2

REPORT INFORMATION
  Report Type: Report from Study
  Country: BR (occurrence: BR)
  Receive Date: 20170619
  Receipt Date: 20170619
  Transmission Date: 20170830
  Serious: Yes (Other)
  Sender: FDA-Public Use
  Company Number: PHHY2017BR089078

PATIENT
  Sex: Male
  Weight: 75 kg

DRUGS (4)
  1. TEGRETOL [Suspect]
     Active Substance: CARBAMAZEPINE
     Indication: MASS
  2. CARBAMAZEPINE. [Suspect]
     Active Substance: CARBAMAZEPINE
     Indication: SEIZURE
     Dosage: UNK
     Route: 065
     Dates: end: 2015
  3. TEGRETOL [Suspect]
     Active Substance: CARBAMAZEPINE
     Indication: SEIZURE
     Dosage: 1.5 DF, QD (200MG IN THE MORNING AND 400MG AT NIGHT)
     Route: 048
  4. TEGRETOL [Suspect]
     Active Substance: CARBAMAZEPINE
     Indication: SYNCOPE

REACTIONS (5)
  - Malaise [Unknown]
  - Oral discharge [Unknown]
  - Product use in unapproved indication [Unknown]
  - Seizure [Unknown]
  - Dizziness [Recovering/Resolving]
